FAERS Safety Report 24181473 (Version 1)
Quarter: 2024Q3

REPORT INFORMATION
  Report Type: Report from Study
  Country: US (occurrence: None)
  Receive Date: 20240807
  Receipt Date: 20240807
  Transmission Date: 20241017
  Serious: Yes (Other)
  Sender: ASTRAZENECA
  Company Number: 2021A208832

PATIENT
  Age: 84 Year
  Sex: Female

DRUGS (5)
  1. TAGRISSO [Suspect]
     Active Substance: OSIMERTINIB
     Indication: Lung neoplasm malignant
     Route: 048
  2. METOPROLOL [Suspect]
     Active Substance: METOPROLOL
     Indication: Heart rate irregular
  3. ROSUVASTATIN [Suspect]
     Active Substance: ROSUVASTATIN\ROSUVASTATIN CALCIUM
     Route: 048
  4. ALIGN [Concomitant]
     Active Substance: BIFIDOBACTERIUM LONGUM SUBSP. INFANTIS
  5. CALCIUM [Concomitant]
     Active Substance: CALCIUM

REACTIONS (7)
  - Arteriosclerosis [Unknown]
  - Heart rate irregular [Unknown]
  - Diarrhoea [Unknown]
  - Gingival atrophy [Unknown]
  - Glossodynia [Unknown]
  - Weight decreased [Unknown]
  - Muscular weakness [Unknown]
